FAERS Safety Report 9948977 (Version 2)
Quarter: 2014Q1

REPORT INFORMATION
  Report Type: Spontaneous
  Country: US (occurrence: US)
  Receive Date: 20140304
  Receipt Date: 20140316
  Transmission Date: 20141002
  Serious: Yes (Hospitalization)
  Sender: FDA-Public Use
  Company Number: US-BAYER-2014-030690

PATIENT
  Age: 22 Year
  Sex: Female
  Weight: 68.03 kg

DRUGS (2)
  1. MIRENA [Suspect]
     Indication: CONTRACEPTION
     Dosage: 20 MCG/24HR, CONT
     Route: 015
     Dates: start: 20091006, end: 20120505
  2. MIRENA [Suspect]
     Indication: MENORRHAGIA

REACTIONS (8)
  - Uterine perforation [None]
  - Ectopic pregnancy [None]
  - Salpingitis [None]
  - Abdominal pain [None]
  - Drug ineffective [None]
  - Depression [None]
  - Injury [None]
  - Emotional distress [None]
